FAERS Safety Report 5202983-9 (Version None)
Quarter: 2006Q4

REPORT INFORMATION
  Report Type: 
  Country: None (occurrence: None)
  Receive Date: 20061016
  Receipt Date: 20060815
  Transmission Date: 20070319
  Serious: No
  Sender: FDA-Public Use
  Company Number: 2006SP003024

PATIENT
  Age: 61 Year
  Sex: Female

DRUGS (1)
  1. LUNESTA [Suspect]
     Indication: INSOMNIA
     Dosage: 1X; ORAL
     Route: 048
     Dates: start: 20050101, end: 20050101

REACTIONS (1)
  - TACHYCARDIA [None]
